FAERS Safety Report 4833691-1 (Version None)
Quarter: 2005Q4

REPORT INFORMATION
  Report Type: 
  Country: None (occurrence: None)
  Receive Date: 20051114
  Receipt Date: 20051104
  Transmission Date: 20060501
  Serious: Yes (Death)
  Sender: FDA-Public Use
  Company Number: 2005US001598

PATIENT
  Age: 72 Year
  Sex: Male

DRUGS (3)
  1. ADENOSCAN [Suspect]
     Indication: SCAN MYOCARDIAL PERFUSION
     Dosage: IV NOS
     Route: 042
     Dates: start: 20051018, end: 20051018
  2. THALLIUM CHLORIDE (TL201) (THALLOUS CHLORIDE (201 TL)) [Suspect]
     Indication: SCAN MYOCARDIAL PERFUSION
     Dosage: IV NOS
     Route: 042
     Dates: start: 20051018, end: 20051018
  3. CARDIOLITE [Concomitant]

REACTIONS (1)
  - CARDIO-RESPIRATORY ARREST [None]
